FAERS Safety Report 7250353-4 (Version None)
Quarter: 2011Q1

REPORT INFORMATION
  Report Type: 
  Country: None (occurrence: None)
  Receive Date: 20110128
  Receipt Date: 20110118
  Transmission Date: 20110831
  Serious: Yes (Hospitalization)
  Sender: FDA-Public Use
  Company Number: FR-SANOFI-AVENTIS-2011SA003730

PATIENT
  Age: 79 Year
  Sex: Male

DRUGS (1)
  1. MULTAQ [Suspect]
     Route: 048

REACTIONS (4)
  - HEPATIC FAILURE [None]
  - WEIGHT DECREASED [None]
  - RENAL FAILURE [None]
  - GASTROINTESTINAL DISORDER [None]
